FAERS Safety Report 13191149 (Version 2)
Quarter: 2017Q4

REPORT INFORMATION
  Report Type: Report from Study
  Country: US (occurrence: US)
  Receive Date: 20170207
  Receipt Date: 20171013
  Transmission Date: 20180320
  Serious: Yes (Death)
  Sender: FDA-Public Use
  Company Number: US-ROCHE-1890085

PATIENT
  Sex: Male
  Weight: 66.74 kg

DRUGS (2)
  1. VALCYTE [Suspect]
     Active Substance: VALGANCICLOVIR HYDROCHLORIDE
     Indication: LUNG TRANSPLANT
     Dosage: DOSE UNKNOWN ;ONGOING: YES
     Route: 048
     Dates: start: 2015
  2. VALCYTE [Suspect]
     Active Substance: VALGANCICLOVIR HYDROCHLORIDE
     Dosage: MONDAY AND THURSDAY
     Route: 048

REACTIONS (2)
  - Tonsil cancer [Fatal]
  - Hepatic cancer [Fatal]

NARRATIVE: CASE EVENT DATE: 2016
